FAERS Safety Report 5721529-X (Version None)
Quarter: 2008Q2

REPORT INFORMATION
  Report Type: 
  Country: None (occurrence: None)
  Receive Date: 20080429
  Receipt Date: 20070413
  Transmission Date: 20081010
  Serious: No
  Sender: FDA-Public Use
  Company Number: US-ASTRAZENECA-2007UW01281

PATIENT
  Age: 49 Year
  Sex: Female

DRUGS (2)
  1. NEXIUM [Suspect]
     Indication: DYSPEPSIA
     Route: 048
     Dates: start: 20070110
  2. NEXIUM [Suspect]
     Route: 048

REACTIONS (18)
  - ABDOMINAL DISTENSION [None]
  - ANGER [None]
  - ANOREXIA [None]
  - CONSTIPATION [None]
  - DARK CIRCLES UNDER EYES [None]
  - EYE DISORDER [None]
  - EYE PAIN [None]
  - EYE PRURITUS [None]
  - HAIR COLOUR CHANGES [None]
  - HUNGER [None]
  - ILL-DEFINED DISORDER [None]
  - MEMORY IMPAIRMENT [None]
  - OCULAR HYPERAEMIA [None]
  - PALLOR [None]
  - PRURITUS [None]
  - RASH ERYTHEMATOUS [None]
  - SKIN DISCOLOURATION [None]
  - SOMNOLENCE [None]
